FAERS Safety Report 5041305-3 (Version None)
Quarter: 2006Q3

REPORT INFORMATION
  Report Type: 
  Country: None (occurrence: None)
  Receive Date: 20060703
  Receipt Date: 20060622
  Transmission Date: 20061208
  Serious: Yes (Other)
  Sender: FDA-Public Use
  Company Number: FR-BRISTOL-MYERS SQUIBB COMPANY-13422522

PATIENT
  Age: 39 Year
  Sex: Female
  Weight: 51 kg

DRUGS (6)
  1. REYATAZ [Suspect]
     Indication: HIV INFECTION
     Route: 048
     Dates: start: 20041230
  2. EPIVIR [Suspect]
     Route: 048
     Dates: start: 20041230
  3. ZIAGEN [Suspect]
     Route: 048
     Dates: start: 20041230
  4. NORVIR [Suspect]
     Route: 048
     Dates: start: 20041230
  5. COMBIVIR [Concomitant]
  6. KALETRA [Concomitant]

REACTIONS (3)
  - SKIN DISORDER [None]
  - VERTIGO [None]
  - WEIGHT DECREASED [None]
